FAERS Safety Report 10424478 (Version 3)
Quarter: 2015Q1

REPORT INFORMATION
  Report Type: Spontaneous
  Country: JP (occurrence: JP)
  Receive Date: 20140902
  Receipt Date: 20150224
  Transmission Date: 20150720
  Serious: Yes (Hospitalization)
  Sender: FDA-Public Use
  Company Number: JP-PFIZER INC-2014241261

PATIENT
  Age: 78 Year
  Sex: Male
  Weight: 52 kg

DRUGS (13)
  1. MUCOSTA [Suspect]
     Active Substance: REBAMIPIDE
     Dosage: 100 MG, 3X/DAY
     Route: 048
     Dates: start: 20131216
  2. BAKTAR [Suspect]
     Active Substance: SULFAMETHOXAZOLE\TRIMETHOPRIM
     Dosage: 2 TABLETS ONCE DAILY
     Route: 048
     Dates: start: 20121231
  3. HOKUNALIN [Suspect]
     Active Substance: TULOBUTEROL
     Dosage: 2 MG, 1X/DAY
     Route: 062
     Dates: start: 20121225
  4. KLARICID [Suspect]
     Active Substance: CLARITHROMYCIN
     Dosage: 200 MG, 2X/DAY
     Route: 048
     Dates: start: 20121225
  5. FUROSEMIDE. [Suspect]
     Active Substance: FUROSEMIDE
     Dosage: 20 MG, 1X/DAY
     Route: 048
     Dates: start: 20130726
  6. BASEN OD [Suspect]
     Active Substance: VOGLIBOSE
     Dosage: 0.3 MG, 3X/DAY
     Route: 048
  7. CALONAL [Suspect]
     Active Substance: ACETAMINOPHEN
     Dosage: 400 MG, 3X/DAY
     Route: 048
     Dates: start: 20140714, end: 20140825
  8. VFEND [Suspect]
     Active Substance: VORICONAZOLE
     Indication: INTERSTITIAL LUNG DISEASE
     Dosage: 200 MG, 2X/DAY
     Route: 048
     Dates: start: 20140723, end: 20140815
  9. ADALAT CC [Suspect]
     Active Substance: NIFEDIPINE
     Dosage: 20 MG, 1X/DAY
     Route: 048
  10. PREDONINE [Suspect]
     Active Substance: PREDNISOLONE\PREDNISOLONE ACETATE\PREDNISOLONE SODIUM SUCCINATE
     Dosage: 10 MG, 1X/DAY
     Route: 048
     Dates: start: 20130107
  11. MUCODYNE [Suspect]
     Active Substance: CARBOCYSTEINE
     Dosage: 500 MG, 3X/DAY
     Route: 048
     Dates: start: 20121225
  12. MAGLAX [Suspect]
     Active Substance: MAGNESIUM OXIDE
     Dosage: 330 MG, 3X/DAY
     Route: 048
     Dates: start: 20120609
  13. PARIET [Suspect]
     Active Substance: RABEPRAZOLE SODIUM
     Dosage: 10 MG, 1X/DAY
     Route: 048
     Dates: start: 20120609

REACTIONS (1)
  - Hepatic function abnormal [Recovering/Resolving]

NARRATIVE: CASE EVENT DATE: 20140815
